FAERS Safety Report 5920861-4 (Version None)
Quarter: 2008Q4

REPORT INFORMATION
  Report Type: 
  Country: None (occurrence: None)
  Receive Date: 20081015
  Receipt Date: 20081015
  Transmission Date: 20090506
  Serious: Yes (Other)
  Sender: FDA-Public Use
  Company Number: None

PATIENT
  Age: 34 Year
  Sex: Female
  Weight: 95.2554 kg

DRUGS (1)
  1. ABILIFY [Suspect]
     Indication: BIPOLAR DISORDER
     Dosage: 1 TIME PER DAY 1 X PER DAY PO
     Route: 048
     Dates: start: 20081002, end: 20081014

REACTIONS (5)
  - AMNESIA [None]
  - DIZZINESS [None]
  - PAIN [None]
  - RESTLESSNESS [None]
  - VISION BLURRED [None]
